FAERS Safety Report 7519278-0 (Version None)
Quarter: 2011Q2

REPORT INFORMATION
  Report Type: 
  Country: None (occurrence: None)
  Receive Date: 20110602
  Receipt Date: 20110523
  Transmission Date: 20111010
  Serious: Yes (Hospitalization, Other)
  Sender: FDA-Public Use
  Company Number: SG-ABBOTT-11P-008-0705124-00

PATIENT

DRUGS (6)
  1. TENOFOVIR DISOPROXIL FUMARATE [Concomitant]
     Indication: HIV INFECTION
     Dosage: OM
     Dates: start: 20100701
  2. FLUCONOZOLE [Concomitant]
     Indication: CRYPTOCOCCOSIS
     Dates: start: 20031230
  3. DAPSONE [Concomitant]
     Indication: PROPHYLAXIS
     Dosage: 1 OM
     Dates: start: 20031230
  4. KALETRA [Suspect]
     Indication: HIV INFECTION
     Dosage: 1 BD
     Route: 048
     Dates: start: 20100701
  5. EMITRICITABINE [Concomitant]
     Indication: HIV INFECTION
     Dosage: OM
     Dates: start: 20100701
  6. FOLIC ACID [Concomitant]
     Indication: VITAMIN SUPPLEMENTATION
     Dosage: OM
     Dates: start: 20090804

REACTIONS (2)
  - HERPES ZOSTER [None]
  - STAPHYLOCOCCAL INFECTION [None]
